FAERS Safety Report 12319864 (Version 1)
Quarter: 2016Q2

REPORT INFORMATION
  Report Type: Spontaneous
  Country: US (occurrence: US)
  Receive Date: 20160429
  Receipt Date: 20160429
  Transmission Date: 20160815
  Serious: No
  Sender: FDA-Public Use
  Company Number: US-ROCHE-1633620

PATIENT
  Sex: Male
  Weight: 136.2 kg

DRUGS (1)
  1. ESBRIET [Suspect]
     Active Substance: PIRFENIDONE
     Indication: IDIOPATHIC PULMONARY FIBROSIS
     Route: 048

REACTIONS (7)
  - Decreased appetite [Unknown]
  - Dyspnoea [Unknown]
  - Dysuria [Unknown]
  - Urinary tract infection [Unknown]
  - Rash [Unknown]
  - Nausea [Unknown]
  - Fatigue [Unknown]
